FAERS Safety Report 10675602 (Version 1)
Quarter: 2014Q4

REPORT INFORMATION
  Report Type: Spontaneous
  Country: US (occurrence: US)
  Receive Date: 20141224
  Receipt Date: 20141224
  Transmission Date: 20150529
  Serious: No
  Sender: FDA-Public Use
  Company Number: US-BAUSCH-SYM-2014-18125

PATIENT
  Age: 82 Year
  Sex: Male

DRUGS (1)
  1. XENAZINE [Suspect]
     Active Substance: TETRABENAZINE
     Indication: HUNTINGTON^S DISEASE
     Route: 048
     Dates: start: 20120202

REACTIONS (3)
  - Dyskinesia [Unknown]
  - Intentional overdose [Unknown]
  - Balance disorder [Unknown]

NARRATIVE: CASE EVENT DATE: 20140224
